FAERS Safety Report 5053828-1 (Version None)
Quarter: 2006Q3

REPORT INFORMATION
  Report Type: 
  Country: None (occurrence: None)
  Receive Date: 20060718
  Receipt Date: 20060511
  Transmission Date: 20061208
  Serious: Yes (Hospitalization)
  Sender: FDA-Public Use
  Company Number: FR-GLAXOSMITHKLINE-B0423998A

PATIENT
  Age: 7 Day
  Sex: Male
  Weight: 4.2 kg

DRUGS (2)
  1. ZOVIRAX [Suspect]
     Dosage: 20MGK THREE TIMES PER DAY
     Route: 042
     Dates: start: 20060405, end: 20060512
  2. ANTIBIOTICS (UNSPECIFIED) [Concomitant]
     Route: 065
     Dates: start: 20060404

REACTIONS (10)
  - CHOLESTASIS [None]
  - CONJUNCTIVAL HAEMORRHAGE [None]
  - CYTOLYTIC HEPATITIS [None]
  - DEPRESSED LEVEL OF CONSCIOUSNESS [None]
  - GENERAL PHYSICAL HEALTH DETERIORATION [None]
  - HEPATIC FAILURE [None]
  - HEPATITIS FULMINANT [None]
  - HERPES VIRUS INFECTION [None]
  - PYLORIC STENOSIS [None]
  - VOMITING [None]
